FAERS Safety Report 6010361-8 (Version None)
Quarter: 2008Q4

REPORT INFORMATION
  Report Type: 
  Country: None (occurrence: None)
  Receive Date: 20081218
  Receipt Date: 20081211
  Transmission Date: 20090506
  Serious: Yes (Hospitalization)
  Sender: FDA-Public Use
  Company Number: DE-ABBOTT-08P-062-0492344-00

PATIENT
  Sex: Female
  Weight: 73 kg

DRUGS (3)
  1. HUMIRA [Suspect]
     Indication: CROHN'S DISEASE
     Route: 058
     Dates: start: 20081111, end: 20081111
  2. HUMIRA [Suspect]
     Route: 058
     Dates: start: 20081112, end: 20081120
  3. HUMIRA [Suspect]
     Route: 058
     Dates: start: 20081204, end: 20081209

REACTIONS (1)
  - PANCREATITIS [None]
